FAERS Safety Report 5141010-9 (Version None)
Quarter: 2006Q4

REPORT INFORMATION
  Report Type: 
  Country: None (occurrence: None)
  Receive Date: 20061026
  Receipt Date: 20061019
  Transmission Date: 20070319
  Serious: Yes (Hospitalization)
  Sender: FDA-Public Use
  Company Number: FRWYE282919OCT06

PATIENT
  Age: 30 Year
  Sex: Female

DRUGS (4)
  1. EFFEXOR [Suspect]
     Indication: DEPRESSION
     Dosage: 50 MG TOTAL DAILY
     Route: 048
     Dates: start: 20060516, end: 20060526
  2. EFFEXOR XR [Suspect]
     Indication: DEPRESSION
     Dosage: 37.5 MG 1X PER 1 DAY
     Route: 048
     Dates: start: 20060301, end: 20060515
  3. VENTOLIN [Concomitant]
  4. LEXOMIL (BROMAZEPAM) [Concomitant]

REACTIONS (3)
  - DRUG INEFFECTIVE [None]
  - HEPATITIS [None]
  - MALNUTRITION [None]
